FAERS Safety Report 5241535-1 (Version None)
Quarter: 2007Q1

REPORT INFORMATION
  Report Type: 
  Country: None (occurrence: None)
  Receive Date: 20070220
  Receipt Date: 20070213
  Transmission Date: 20070707
  Serious: Yes (Death)
  Sender: FDA-Public Use
  Company Number: AU-GLAXOSMITHKLINE-B0458830A

PATIENT

DRUGS (14)
  1. BUSULPHAN [Suspect]
     Indication: MANTLE CELL LYMPHOMA
     Dosage: 1MGK SEE DOSAGE TEXT
     Route: 048
  2. MELPHALAN [Suspect]
     Indication: MANTLE CELL LYMPHOMA
     Dosage: 140MGM2 SEE DOSAGE TEXT
     Route: 065
  3. FOLINIC ACID [Suspect]
     Indication: MANTLE CELL LYMPHOMA
     Route: 065
  4. TRIMETHOPRIM [Suspect]
     Dosage: 160MG SEE DOSAGE TEXT
     Route: 065
  5. RITUXIMAB [Suspect]
     Indication: MANTLE CELL LYMPHOMA
     Dosage: 375MGM2 SEE DOSAGE TEXT
     Route: 065
  6. VINCRISTINE [Suspect]
     Indication: MANTLE CELL LYMPHOMA
     Dosage: 1.4MGM2 SEE DOSAGE TEXT
     Route: 065
  7. DEXAMETHASONE [Suspect]
     Indication: MANTLE CELL LYMPHOMA
     Dosage: 40MG PER DAY
     Route: 048
  8. METHOTREXATE [Suspect]
     Indication: MANTLE CELL LYMPHOMA
     Route: 042
  9. CYCLOPHOSPHAMIDE [Suspect]
     Indication: MANTLE CELL LYMPHOMA
     Dosage: 300MGM2 SEE DOSAGE TEXT
     Route: 065
  10. CYTARABINE [Suspect]
     Indication: MANTLE CELL LYMPHOMA
     Dosage: 3GM2 SEE DOSAGE TEXT
     Route: 065
  11. NEUPOGEN [Suspect]
     Indication: MANTLE CELL LYMPHOMA
     Dosage: 10UGK SEE DOSAGE TEXT
     Route: 058
  12. FLUCONAZOLE [Suspect]
     Dosage: 200MG PER DAY
     Route: 065
  13. SULFAMETHOXAZOLE [Suspect]
     Dosage: 800MG SEE DOSAGE TEXT
     Route: 065
  14. DOXORUBICIN HCL [Suspect]
     Indication: MANTLE CELL LYMPHOMA
     Dosage: 50MGM2 SEE DOSAGE TEXT
     Route: 065

REACTIONS (2)
  - MULTI-ORGAN FAILURE [None]
  - NEUTROPENIC SEPSIS [None]
